FAERS Safety Report 13964572 (Version 1)
Quarter: 2017Q3

REPORT INFORMATION
  Report Type: Spontaneous
  Country: US (occurrence: US)
  Receive Date: 20170913
  Receipt Date: 20170913
  Transmission Date: 20171128
  Serious: Yes (Other)
  Sender: FDA-Public Use
  Company Number: US-SUPERNUS PHARMACEUTICALS, INC.-2017SUP00245

PATIENT
  Sex: Female
  Weight: 68.27 kg

DRUGS (4)
  1. OXTELLAR XR [Suspect]
     Active Substance: OXCARBAZEPINE
     Dosage: 300 MG, 2X/DAY
     Route: 048
     Dates: start: 20170819
  2. OXTELLAR XR [Suspect]
     Active Substance: OXCARBAZEPINE
     Indication: SEIZURE
     Dosage: 300 MG, 1X/DAY
     Route: 048
     Dates: start: 20170506, end: 20170818
  3. OPTIVIT [Concomitant]
     Active Substance: MINERALS\VITAMINS
  4. LEVOTHYROXINE. [Concomitant]
     Active Substance: LEVOTHYROXINE

REACTIONS (5)
  - Seizure [Unknown]
  - Abdominal discomfort [Unknown]
  - Chromaturia [Unknown]
  - Depression [Unknown]
  - Drug dose omission [Recovered/Resolved]
